FAERS Safety Report 6655416-X (Version None)
Quarter: 2010Q1

REPORT INFORMATION
  Report Type: 
  Country: None (occurrence: None)
  Receive Date: 20100329
  Receipt Date: 20100224
  Transmission Date: 20100710
  Serious: No
  Sender: FDA-Public Use
  Company Number: US-BAYER-201012551BCC

PATIENT
  Age: 21 Year
  Sex: Female
  Weight: 68 kg

DRUGS (3)
  1. ALEVE [Suspect]
     Indication: MUSCLE SPASMS
     Route: 048
     Dates: start: 20100224
  2. ADDERALL XR 10 [Concomitant]
     Route: 065
     Dates: start: 20100224
  3. LEXAPRO [Concomitant]
     Route: 065
     Dates: start: 20100224

REACTIONS (1)
  - NAUSEA [None]
